FAERS Safety Report 19786968 (Version 1)
Quarter: 2021Q3

REPORT INFORMATION
  Report Type: Spontaneous
  Country: CA (occurrence: CA)
  Receive Date: 20210903
  Receipt Date: 20210903
  Transmission Date: 20211014
  Serious: Yes (Other)
  Sender: FDA-Public Use
  Company Number: CA-SAMSUNG BIOEPIS-SB-2021-21007

PATIENT
  Age: 42 Year
  Sex: Male
  Weight: 131 kg

DRUGS (2)
  1. INFLIXIMAB [Suspect]
     Active Substance: INFLIXIMAB
     Indication: CROHN^S DISEASE
     Route: 042
  2. HYDROCORTISONE. [Concomitant]
     Active Substance: HYDROCORTISONE
     Indication: PREMEDICATION
     Route: 065

REACTIONS (6)
  - Limb injury [Unknown]
  - Off label use [Unknown]
  - Therapy non-responder [Unknown]
  - Condition aggravated [Unknown]
  - Intentional product use issue [Unknown]
  - Blood pressure increased [Unknown]
